FAERS Safety Report 7266925-7 (Version None)
Quarter: 2011Q1

REPORT INFORMATION
  Report Type: 
  Country: None (occurrence: None)
  Receive Date: 20110120
  Receipt Date: 20110110
  Transmission Date: 20110831
  Serious: Yes (Life-Threatening, Hospitalization)
  Sender: FDA-Public Use
  Company Number: 023881

PATIENT
  Sex: Female
  Weight: 89 kg

DRUGS (7)
  1. TEGRETOL [Suspect]
     Indication: EPILEPSY
     Dosage: 400 MG BID, IN THE MORNING AND THE EVENING ORAL
     Route: 048
  2. CLONAZEPAM [Suspect]
     Indication: EPILEPSY
     Dosage: SEE IMAGE
     Route: 048
     Dates: end: 20101003
  3. CLONAZEPAM [Suspect]
     Indication: EPILEPSY
     Dosage: SEE IMAGE
     Route: 048
     Dates: start: 20101003, end: 20101003
  4. CLONAZEPAM [Suspect]
     Indication: EPILEPSY
     Dosage: SEE IMAGE
     Route: 048
     Dates: start: 20101109
  5. CLONAZEPAM [Suspect]
     Indication: EPILEPSY
     Dosage: SEE IMAGE
     Route: 048
     Dates: start: 20101001, end: 20101109
  6. LAMICTAL [Suspect]
     Indication: EPILEPSY
     Dosage: 550 MG IN THE MORNING/300 MG IN THE EVENNG ORAL)
     Route: 048
  7. KEPPRA [Suspect]
     Indication: EPILEPSY
     Dosage: 1250 MG BID, IN THE MORNING AND THE EVENING ORAL
     Route: 048

REACTIONS (12)
  - DRUG EFFECT DECREASED [None]
  - GRAND MAL CONVULSION [None]
  - HEART RATE INCREASED [None]
  - BLOOD MAGNESIUM DECREASED [None]
  - CONVULSION [None]
  - DRUG EXPOSURE DURING PREGNANCY [None]
  - SOMNOLENCE [None]
  - SELF-MEDICATION [None]
  - SEDATION [None]
  - HYPOCALCAEMIA [None]
  - HAEMOGLOBIN DECREASED [None]
  - DRUG LEVEL DECREASED [None]
